FAERS Safety Report 24534506 (Version 1)
Quarter: 2024Q4

REPORT INFORMATION
  Report Type: Spontaneous
  Country: US (occurrence: None)
  Receive Date: 20241022
  Receipt Date: 20241022
  Transmission Date: 20250115
  Serious: No
  Sender: Public
  Company Number: None

PATIENT
  Sex: 0

DRUGS (1)
  1. AUBAGIO [Suspect]
     Active Substance: TERIFLUNOMIDE

REACTIONS (5)
  - Dyspepsia [None]
  - Alopecia [None]
  - Fatigue [None]
  - Nasopharyngitis [None]
  - Influenza [None]

NARRATIVE: CASE EVENT DATE: 20241022
